FAERS Safety Report 26164911 (Version 2)
Quarter: 2025Q4

REPORT INFORMATION
  Report Type: Spontaneous
  Country: JP (occurrence: JP)
  Receive Date: 20251216
  Receipt Date: 20251229
  Transmission Date: 20260118
  Serious: Yes (Other)
  Sender: INCYTE
  Company Number: JP-002147023-NVSJ2025JP011976

PATIENT
  Age: 60 Year

DRUGS (3)
  1. RUXOLITINIB [Suspect]
     Active Substance: RUXOLITINIB
     Indication: Myelofibrosis
     Dosage: UNK
     Route: 065
  2. RUXOLITINIB [Suspect]
     Active Substance: RUXOLITINIB
     Dosage: 40 MG
     Route: 065
  3. RUXOLITINIB [Suspect]
     Active Substance: RUXOLITINIB
     Dosage: DOSE REDUCED
     Route: 065

REACTIONS (1)
  - Withdrawal syndrome [Recovering/Resolving]
